FAERS Safety Report 9109006 (Version 1)
Quarter: 2013Q1

REPORT INFORMATION
  Report Type: Spontaneous
  Country: US (occurrence: US)
  Receive Date: 20130222
  Receipt Date: 20130222
  Transmission Date: 20140127
  Serious: Yes (Other)
  Sender: FDA-Public Use
  Company Number: US-ASTRAZENECA-2013SE10140

PATIENT
  Age: 56 Year
  Sex: Female

DRUGS (7)
  1. ANASTROZOLE [Suspect]
     Indication: BREAST CANCER
     Route: 048
  2. CARBOPLATIN [Concomitant]
     Indication: BREAST CANCER
  3. CARBOPLATIN [Concomitant]
     Indication: ENDOMETRIAL CANCER
  4. CARBOPLATIN [Concomitant]
     Indication: OVARIAN CANCER
  5. PACLITAXEL [Concomitant]
     Indication: BREAST CANCER
  6. PACLITAXEL [Concomitant]
     Indication: ENDOMETRIAL CANCER
  7. PACLITAXEL [Concomitant]
     Indication: OVARIAN CANCER

REACTIONS (1)
  - Papilloedema [Recovering/Resolving]
